FAERS Safety Report 24105182 (Version 1)
Quarter: 2024Q3

REPORT INFORMATION
  Report Type: Spontaneous
  Country: CN (occurrence: CN)
  Receive Date: 20240717
  Receipt Date: 20240717
  Transmission Date: 20241017
  Serious: Yes (Life-Threatening)
  Sender: ROCHE
  Company Number: CN-BoehringerIngelheim-2024-BI-039339

PATIENT
  Age: 77 Year
  Sex: Male
  Weight: 50.0 kg

DRUGS (2)
  1. ALTEPLASE [Suspect]
     Active Substance: ALTEPLASE
     Indication: Thrombolysis
     Route: 042
     Dates: start: 20240704, end: 20240704
  2. ALTEPLASE [Suspect]
     Active Substance: ALTEPLASE
     Dosage: REMAINING DOSE WAS GIVEN BY MICROPUMP INFUSION FOR 1 H
     Route: 042
     Dates: start: 20240704, end: 20240704

REACTIONS (3)
  - Cerebral haemorrhage [Unknown]
  - Respiratory failure [Unknown]
  - Gingival bleeding [Recovered/Resolved]

NARRATIVE: CASE EVENT DATE: 20240704
